FAERS Safety Report 10963402 (Version 1)
Quarter: 2015Q1

REPORT INFORMATION
  Report Type: Spontaneous
  Country: US (occurrence: None)
  Receive Date: 20150326
  Receipt Date: 20150326
  Transmission Date: 20150721
  Serious: Yes (Death, Other)
  Sender: FDA-Public Use
  Company Number: 2015-10890

PATIENT
  Age: 94 Year
  Sex: Male

DRUGS (1)
  1. EYLEA [Suspect]
     Active Substance: AFLIBERCEPT
     Indication: AGE-RELATED MACULAR DEGENERATION
     Dosage: UNK, EVERY 5-7 WEEKS, INTRAOCULAR
     Route: 031
     Dates: start: 201404, end: 20141209

REACTIONS (1)
  - Death [None]

NARRATIVE: CASE EVENT DATE: 20150215
